FAERS Safety Report 5919242-9 (Version None)
Quarter: 2008Q4

REPORT INFORMATION
  Report Type: 
  Country: None (occurrence: None)
  Receive Date: 20081014
  Receipt Date: 20081014
  Transmission Date: 20090506
  Serious: Yes (Hospitalization)
  Sender: FDA-Public Use
  Company Number: None

PATIENT
  Age: 57 Year
  Sex: Female

DRUGS (1)
  1. HURRICAINE TOPICAL ANES. SPRAY 20% BENZOCAINE BEUTLICH PHARMACEUTICALS [Suspect]
     Indication: ENDOSCOPIC RETROGRADE CHOLANGIOPANCREATOGRAPHY
     Dates: start: 20081009, end: 20081009

REACTIONS (1)
  - METHAEMOGLOBINAEMIA [None]
